FAERS Safety Report 16776057 (Version 1)
Quarter: 2019Q3

REPORT INFORMATION
  Report Type: Spontaneous
  Country: US (occurrence: US)
  Receive Date: 20190716
  Receipt Date: 20190716
  Transmission Date: 20191005
  Serious: Yes (Life-Threatening)
  Sender: FDA-Public Use
  Company Number: None

PATIENT
  Age: 58 Year
  Sex: Female
  Weight: 44.91 kg

DRUGS (3)
  1. PAXIL [Suspect]
     Active Substance: PAROXETINE HYDROCHLORIDE
     Indication: ANXIETY
     Route: 048
     Dates: start: 201906
  2. OLANZAPINE. [Concomitant]
     Active Substance: OLANZAPINE
  3. PAXIL [Suspect]
     Active Substance: PAROXETINE HYDROCHLORIDE
     Indication: MOOD SWINGS
     Route: 048
     Dates: start: 201906

REACTIONS (5)
  - Salivary hypersecretion [None]
  - Paraesthesia [None]
  - Hypoaesthesia [None]
  - Vertigo [None]
  - Somnolence [None]
